FAERS Safety Report 5057180-7 (Version None)
Quarter: 2006Q3

REPORT INFORMATION
  Report Type: 
  Country: None (occurrence: None)
  Receive Date: 20060721
  Receipt Date: 20050531
  Transmission Date: 20061208
  Serious: No
  Sender: FDA-Public Use
  Company Number: US-GLAXOSMITHKLINE-A0560593A

PATIENT
  Sex: Female

DRUGS (9)
  1. AVANDIA [Suspect]
     Dosage: 4MG PER DAY
     Route: 048
     Dates: start: 20040101
  2. OXYGEN [Concomitant]
  3. ACCUPRIL [Concomitant]
  4. POTASSIUM CHLORIDE [Concomitant]
  5. PREDNISONE [Concomitant]
  6. PROVENTIL-HFA [Concomitant]
  7. FLOVENT [Concomitant]
  8. GLUCOVANCE [Concomitant]
  9. PREVACID [Concomitant]

REACTIONS (3)
  - ANXIETY [None]
  - CRYING [None]
  - RESPIRATORY SIGHS [None]
